FAERS Safety Report 6660586-3 (Version None)
Quarter: 2010Q1

REPORT INFORMATION
  Report Type: 
  Country: None (occurrence: None)
  Receive Date: 20100331
  Receipt Date: 20091111
  Transmission Date: 20100710
  Serious: No
  Sender: FDA-Public Use
  Company Number: US-ABBOTT-09P-163-0608182-00

PATIENT
  Age: 46 Year
  Sex: Male
  Weight: 111.23 kg

DRUGS (4)
  1. VALPROATE SODIUM [Suspect]
     Indication: ANXIETY
  2. BENADRYL [Suspect]
     Indication: RHINORRHOEA
     Dosage: 2 KAPGELS NO MORE THAN 6 KAPGELS DAILY
     Route: 048
     Dates: start: 20090917, end: 20090920
  3. TRAZODONE [Suspect]
     Indication: ANXIETY
  4. TRAZODONE [Suspect]
     Indication: DRUG DEPENDENCE

REACTIONS (2)
  - DRUG SCREEN POSITIVE [None]
  - PARAESTHESIA [None]
